FAERS Safety Report 23190660 (Version 1)
Quarter: 2023Q4

REPORT INFORMATION
  Report Type: Report from Study
  Country: MX (occurrence: MX)
  Receive Date: 20231116
  Receipt Date: 20231116
  Transmission Date: 20240109
  Serious: Yes (Other)
  Sender: FDA-Public Use
  Company Number: MX-002147023-NVSC2023MX243183

PATIENT
  Age: 64 Year
  Sex: Female

DRUGS (2)
  1. ENTRESTO [Suspect]
     Active Substance: SACUBITRIL\VALSARTAN
     Indication: Cardiac failure
     Dosage: 50 MG, BID
     Route: 048
  2. CARVEDILOL [Concomitant]
     Active Substance: CARVEDILOL
     Indication: Cardiac disorder
     Dosage: 6.25 MG, QD
     Route: 065

REACTIONS (4)
  - Respiratory failure [Unknown]
  - Angina pectoris [Not Recovered/Not Resolved]
  - Depression [Unknown]
  - Chest pain [Unknown]

NARRATIVE: CASE EVENT DATE: 20230628
